FAERS Safety Report 5586626-0 (Version None)
Quarter: 2008Q1

REPORT INFORMATION
  Report Type: 
  Country: None (occurrence: None)
  Receive Date: 20080110
  Receipt Date: 20070926
  Transmission Date: 20080703
  Serious: No
  Sender: FDA-Public Use
  Company Number: US-BAYER-US-2007-036512

PATIENT
  Age: 17 Year
  Sex: Female
  Weight: 73 kg

DRUGS (3)
  1. YAZ [Suspect]
     Indication: ACNE
     Route: 048
     Dates: start: 20070601
  2. MIDOL [Concomitant]
     Route: 048
  3. MOTRIN [Concomitant]
     Route: 048

REACTIONS (2)
  - CAPILLARY FRAGILITY [None]
  - CONTUSION [None]
